FAERS Safety Report 7312045-2 (Version None)
Quarter: 2011Q1

REPORT INFORMATION
  Report Type: 
  Country: None (occurrence: None)
  Receive Date: 20110224
  Receipt Date: 20100730
  Transmission Date: 20110831
  Serious: Yes (Other)
  Sender: FDA-Public Use
  Company Number: US-BRISTOL-MYERS SQUIBB COMPANY-15090814

PATIENT
  Age: 49 Year
  Sex: Female

DRUGS (4)
  1. TAXOTERE [Suspect]
     Dosage: DRUG INTERRUPTED FOR 2 WEEKS. 2ND DOSE:17APR10:100MG.IV
     Route: 042
     Dates: start: 20100407, end: 20100417
  2. TAXOL [Suspect]
     Indication: BREAST CANCER
     Route: 042
     Dates: start: 20100324, end: 20100331
  3. DECADRON [Concomitant]
     Indication: PREMEDICATION
     Route: 042
     Dates: start: 20100331
  4. ZOFRAN [Concomitant]
     Indication: PREMEDICATION
     Route: 042
     Dates: start: 20100331

REACTIONS (6)
  - BRONCHOSPASM [None]
  - BURNS SECOND DEGREE [None]
  - OEDEMA PERIPHERAL [None]
  - BLISTER [None]
  - SKIN DISORDER [None]
  - BONE MARROW FAILURE [None]
